FAERS Safety Report 16148497 (Version 5)
Quarter: 2019Q3

REPORT INFORMATION
  Report Type: Other
  Country: GB (occurrence: GB)
  Receive Date: 20190402
  Receipt Date: 20190906
  Transmission Date: 20191004
  Serious: Yes (Hospitalization, Other)
  Sender: FDA-Public Use
  Company Number: GB-ASPEN-GLO2019GB002996

PATIENT
  Age: 76 Year
  Sex: Female
  Weight: 58 kg

DRUGS (19)
  1. VENOFER [Concomitant]
     Active Substance: IRON SUCROSE
     Indication: IRON DEFICIENCY
     Dosage: 600 MG, QD
     Route: 042
     Dates: start: 20190318, end: 20190321
  2. GABAPENTIN. [Concomitant]
     Active Substance: GABAPENTIN
     Indication: BONE LESION
     Dosage: 1800 MG, QD
     Route: 048
     Dates: start: 201901
  3. ADCAL D3 [Concomitant]
     Active Substance: CALCIUM CARBONATE\CHOLECALCIFEROL
     Indication: BLOOD CALCIUM DECREASED
     Dosage: 2 DF, QD
     Route: 048
     Dates: start: 20190306
  4. OMEPRAZOLE. [Concomitant]
     Active Substance: OMEPRAZOLE
     Indication: GASTROINTESTINAL DISORDER THERAPY
     Dosage: 20 MG, QD
     Route: 048
     Dates: start: 20190222
  5. AMILORIDE [Concomitant]
     Active Substance: AMILORIDE
     Indication: HYPERTENSION
     Dosage: 10 MG, QD
     Route: 048
     Dates: start: 20190310, end: 20190323
  6. ENOXAPARIN [Concomitant]
     Active Substance: ENOXAPARIN
     Indication: THROMBOSIS PROPHYLAXIS
     Dosage: UNK
     Route: 058
     Dates: start: 20190315, end: 20190330
  7. ENOXAPARIN [Concomitant]
     Active Substance: ENOXAPARIN
     Dosage: 40 MG, QD
     Route: 058
     Dates: start: 20190226
  8. CIPROFLOXACIN. [Concomitant]
     Active Substance: CIPROFLOXACIN
     Dosage: 2 UNK
     Dates: start: 20190425, end: 20190525
  9. NYSTATIN. [Concomitant]
     Active Substance: NYSTATIN
     Indication: ORAL CANDIDIASIS
     Dosage: 1 MILITEX
     Route: 048
     Dates: start: 20190322, end: 20190331
  10. NEORECORMON [Concomitant]
     Active Substance: ERYTHROPOIETIN
     Indication: ANAEMIA
     Dosage: 2000 ^ULL^ (3 DOSE DAILY)
     Route: 058
     Dates: start: 20190312, end: 20190328
  11. FLUCONAZOLE. [Concomitant]
     Active Substance: FLUCONAZOLE
     Indication: SEPSIS
     Dosage: 100 MG, QD
     Route: 048
     Dates: start: 20190322, end: 20190324
  12. DEXAMETHASONE. [Suspect]
     Active Substance: DEXAMETHASONE
     Indication: PLASMA CELL MYELOMA
     Dosage: 20 MG, QD. DAY 1,4,8,11
     Route: 048
     Dates: start: 20190226, end: 20190308
  13. CIPROFLOXACIN. [Concomitant]
     Active Substance: CIPROFLOXACIN
     Indication: URINARY TRACT INFECTION
     Dosage: 1000 MG, QD
     Route: 048
     Dates: start: 20190306
  14. LENALIDOMIDE [Suspect]
     Active Substance: LENALIDOMIDE
     Indication: PLASMA CELL MYELOMA
     Dosage: 10 MG, QD
     Route: 048
     Dates: start: 20190226, end: 20190309
  15. FOLIC ACID. [Concomitant]
     Active Substance: FOLIC ACID
     Indication: BLOOD FOLATE
     Dosage: 5 MG, QD
     Route: 048
     Dates: start: 20190318, end: 20190331
  16. ATENOLOL. [Concomitant]
     Active Substance: ATENOLOL
     Indication: ATRIAL TACHYCARDIA
     Route: 065
  17. VELCADE [Suspect]
     Active Substance: BORTEZOMIB
     Indication: PLASMA CELL MYELOMA
     Dosage: 2 MG, DAY 1,4,8 AND 11.
     Route: 058
     Dates: start: 20190226, end: 20190309
  18. ACICLOVIR [Concomitant]
     Active Substance: ACYCLOVIR
     Indication: INFECTION PROPHYLAXIS
     Dosage: 1200 MG, QD
     Route: 048
     Dates: start: 20190226
  19. ALLOPURINOL. [Concomitant]
     Active Substance: ALLOPURINOL
     Indication: PROPHYLAXIS
     Route: 048

REACTIONS (2)
  - Septic shock [Unknown]
  - Sepsis [Recovered/Resolved]

NARRATIVE: CASE EVENT DATE: 20190310
